FAERS Safety Report 4677278-2 (Version None)
Quarter: 2005Q2

REPORT INFORMATION
  Report Type: 
  Country: None (occurrence: None)
  Receive Date: 20050527
  Receipt Date: 20050527
  Transmission Date: 20051028
  Serious: Yes (Other)
  Sender: FDA-Public Use
  Company Number: None

PATIENT
  Sex: Male
  Weight: 114.76 kg

DRUGS (2)
  1. DILANTIN [Suspect]
     Indication: CONVULSION
  2. TEGRETOL [Suspect]

REACTIONS (3)
  - CONVULSION [None]
  - INJURY [None]
  - PHARMACEUTICAL PRODUCT COMPLAINT [None]
